FAERS Safety Report 8757003 (Version 1)
Quarter: 2012Q4

REPORT INFORMATION
  Report Type: 
  Country: US (occurrence: US)
  Receive Date: 20120828
  Receipt Date: 20120828
  Transmission Date: 20130627
  Serious: No
  Sender: FDA-Public Use
  Company Number: US-009507513-1208USA004973

PATIENT

DRUGS (2)
  1. MIRALAX [Suspect]
     Indication: PRODUCT USED FOR UNKNOWN INDICATION
     Dosage: 17 g, Once
     Route: 048
     Dates: start: 20120803
  2. MIRALAX [Suspect]
     Indication: MEDICAL OBSERVATION

REACTIONS (6)
  - Breast swelling [Not Recovered/Not Resolved]
  - Vomiting [Unknown]
  - Abdominal distension [Unknown]
  - Flatulence [Unknown]
  - Constipation [Recovered/Resolved]
  - Frequent bowel movements [Unknown]
